FAERS Safety Report 9852789 (Version 1)
Quarter: 2014Q1

REPORT INFORMATION
  Report Type: Spontaneous
  Country: US (occurrence: US)
  Receive Date: 20140129
  Receipt Date: 20140129
  Transmission Date: 20141002
  Serious: Yes (Other)
  Sender: FDA-Public Use
  Company Number: US-BAYER-2014-012993

PATIENT
  Age: 24 Year
  Sex: Female

DRUGS (1)
  1. MIRENA [Suspect]
     Indication: CONTRACEPTION
     Dosage: 20 MCG/24HR, CONT
     Route: 015
     Dates: start: 20121025

REACTIONS (8)
  - Medical device discomfort [None]
  - Genital haemorrhage [None]
  - Vomiting [None]
  - Back pain [None]
  - Abdominal pain upper [None]
  - Malaise [None]
  - Nausea [None]
  - Pain [None]
